FAERS Safety Report 7148529-X (Version None)
Quarter: 2010Q4

REPORT INFORMATION
  Report Type: 
  Country: None (occurrence: None)
  Receive Date: 20101209
  Receipt Date: 20101203
  Transmission Date: 20110411
  Serious: Yes (Other)
  Sender: FDA-Public Use
  Company Number: US-BRISTOL-MYERS SQUIBB COMPANY-15410525

PATIENT
  Age: 44 Year
  Sex: Female

DRUGS (11)
  1. DOXORUBICIN [Suspect]
     Indication: BREAST CANCER
  2. CYCLOPHOSPHAMIDE [Suspect]
     Indication: BREAST CANCER
  3. PACLITAXEL [Suspect]
     Indication: BREAST CANCER
  4. TRASTUZUMAB [Suspect]
     Indication: BREAST CANCER
  5. ACETAMINOPHEN [Concomitant]
  6. HYDROCODONE BITARTRATE [Concomitant]
  7. DIPHENHYDRAMINE HCL [Concomitant]
  8. LORAZEPAM [Concomitant]
  9. PALONOSETRON [Concomitant]
  10. DEXAMETHASONE SODIUM PHOSPHATE [Concomitant]
  11. MOUTHWASH [Concomitant]
     Indication: STOMATITIS

REACTIONS (1)
  - SYSTEMIC LUPUS ERYTHEMATOSUS RASH [None]
